FAERS Safety Report 5301798-0 (Version None)
Quarter: 2007Q2

REPORT INFORMATION
  Report Type: 
  Country: None (occurrence: None)
  Receive Date: 20070416
  Receipt Date: 20070416
  Transmission Date: 20071010
  Serious: Yes (Hospitalization)
  Sender: FDA-Public Use
  Company Number: None

PATIENT
  Sex: Female
  Weight: 73.64 kg

DRUGS (2)
  1. CARBOPLATIN [Suspect]
     Dosage: 440 MG
  2. TAXOL [Suspect]
     Dosage: 305 MG

REACTIONS (6)
  - DEEP VEIN THROMBOSIS [None]
  - FATIGUE [None]
  - HYPOCOAGULABLE STATE [None]
  - MALIGNANT NEOPLASM PROGRESSION [None]
  - MYALGIA [None]
  - NO THERAPEUTIC RESPONSE [None]
